FAERS Safety Report 10402936 (Version 3)
Quarter: 2015Q2

REPORT INFORMATION
  Report Type: Spontaneous
  Country: US (occurrence: US)
  Receive Date: 20140822
  Receipt Date: 20150616
  Transmission Date: 20150821
  Serious: Yes (Other)
  Sender: FDA-Public Use
  Company Number: US-BAYER-2014-125785

PATIENT
  Age: 31 Year
  Sex: Female

DRUGS (2)
  1. MIRENA [Suspect]
     Active Substance: LEVONORGESTREL
     Indication: MENORRHAGIA
     Dosage: 20 MCG/24HR, CONT
     Route: 015
     Dates: start: 20140922, end: 20150409
  2. MIRENA [Suspect]
     Active Substance: LEVONORGESTREL
     Indication: CONTRACEPTION
     Dosage: 20 MCG/24HR, CONT
     Route: 015
     Dates: start: 20140313, end: 20140819

REACTIONS (7)
  - Device dislocation [Recovered/Resolved]
  - Menorrhagia [None]
  - Device dislocation [Recovered/Resolved]
  - Adverse event [None]
  - Genital haemorrhage [None]
  - Abdominal pain lower [None]
  - Discomfort [None]

NARRATIVE: CASE EVENT DATE: 2014
